FAERS Safety Report 22522241 (Version 1)
Quarter: 2023Q2

REPORT INFORMATION
  Report Type: Spontaneous
  Country: US (occurrence: US)
  Receive Date: 20230605
  Receipt Date: 20230605
  Transmission Date: 20230722
  Serious: No
  Sender: FDA-Public Use
  Company Number: US-002147023-NVSC2023US124418

PATIENT
  Age: 78 Year
  Sex: Female
  Weight: 73 kg

DRUGS (9)
  1. AZITHROMYCIN [Suspect]
     Active Substance: AZITHROMYCIN
     Indication: Mycobacterium abscessus infection
     Dosage: UNK
     Route: 048
     Dates: start: 20230207
  2. CEFOXITIN [Suspect]
     Active Substance: CEFOXITIN SODIUM
     Indication: Mycobacterium abscessus infection
     Dosage: UNK
     Route: 042
     Dates: start: 20230207
  3. AMIKACIN [Suspect]
     Active Substance: AMIKACIN
     Indication: Mycobacterium abscessus infection
     Dosage: UNK
     Route: 042
     Dates: start: 20220207
  4. CLARITHROMYCIN [Concomitant]
     Active Substance: CLARITHROMYCIN
     Indication: Product used for unknown indication
     Dosage: UNK,  MIC 0.26 S (14 DAY 1- S)
     Route: 065
  5. CEFOXITIN [Concomitant]
     Active Substance: CEFOXITIN SODIUM
     Indication: Product used for unknown indication
     Dosage: UNK, 16 R
     Route: 065
  6. MINOCYCLINE [Concomitant]
     Active Substance: MINOCYCLINE HYDROCHLORIDE
     Indication: Product used for unknown indication
     Dosage: UNK, } 8 NI
     Route: 065
  7. MOXIFLOXACIN [Concomitant]
     Active Substance: MOXIFLOXACIN
     Indication: Product used for unknown indication
     Dosage: 2 I
     Route: 065
  8. IMIPENEM [Concomitant]
     Active Substance: IMIPENEM
     Indication: Product used for unknown indication
     Dosage: UNK,  8- I
     Route: 065
  9. DOXYCYCLINE [Concomitant]
     Active Substance: DOXYCYCLINE
     Indication: Product used for unknown indication
     Dosage: UNK, } 16 R
     Route: 065

REACTIONS (3)
  - Hypervolaemia [Unknown]
  - Drug intolerance [Unknown]
  - Tinnitus [Unknown]
